FAERS Safety Report 7671681-4 (Version None)
Quarter: 2011Q3

REPORT INFORMATION
  Report Type: 
  Country: None (occurrence: None)
  Receive Date: 20110809
  Receipt Date: 20110803
  Transmission Date: 20111222
  Serious: Yes (Other)
  Sender: FDA-Public Use
  Company Number: CHPA2011US10411

PATIENT
  Age: 67 Year
  Sex: Female

DRUGS (3)
  1. VOLTAREN [Suspect]
     Dosage: 4 G, TID
     Route: 061
  2. VOLTAREN [Suspect]
     Indication: NEUROPATHY PERIPHERAL
     Dosage: ^EYEBALLED THE DOSAGE^, BID
     Route: 061
  3. VOLTAREN [Suspect]
     Indication: NERVE COMPRESSION
     Dosage: 4 G, BID, ONCE
     Route: 061

REACTIONS (5)
  - GASTRIC BYPASS [None]
  - WRONG TECHNIQUE IN DRUG USAGE PROCESS [None]
  - DRUG ADMINISTERED AT INAPPROPRIATE SITE [None]
  - THERAPEUTIC RESPONSE UNEXPECTED [None]
  - DRUG INEFFECTIVE FOR UNAPPROVED INDICATION [None]
